FAERS Safety Report 5204230-0 (Version None)
Quarter: 2007Q1

REPORT INFORMATION
  Report Type: 
  Country: None (occurrence: None)
  Receive Date: 20070110
  Receipt Date: 20060210
  Transmission Date: 20070707
  Serious: No
  Sender: FDA-Public Use
  Company Number: US-BRISTOL-MYERS SQUIBB COMPANY-13249875

PATIENT
  Sex: Female

DRUGS (1)
  1. ABILIFY [Suspect]
     Indication: BIPOLAR DISORDER
     Dosage: INITIATED AT 5 MG, INCREASED TO 10 MG
     Route: 048
     Dates: start: 20041101, end: 20041201

REACTIONS (2)
  - DEPRESSION [None]
  - PARKINSONISM [None]
